FAERS Safety Report 5877240-8 (Version None)
Quarter: 2008Q3

REPORT INFORMATION
  Report Type: 
  Country: None (occurrence: None)
  Receive Date: 20080910
  Receipt Date: 20080829
  Transmission Date: 20090109
  Serious: Yes (Other)
  Sender: FDA-Public Use
  Company Number: US-PFIZER INC-2008074038

PATIENT
  Sex: Male
  Weight: 113.4 kg

DRUGS (10)
  1. CHANTIX [Suspect]
     Indication: SMOKING CESSATION THERAPY
     Dates: start: 20080822
  2. VERAPAMIL [Concomitant]
  3. METOPROLOL SUCCINATE [Concomitant]
  4. AGGRENOX [Concomitant]
  5. NAPROXEN [Concomitant]
  6. HYDROCHLOROTHIAZIDE [Concomitant]
  7. FUROSEMIDE [Concomitant]
  8. MOMETASONE FUROATE [Concomitant]
  9. LOVASTATIN [Concomitant]
     Indication: BLOOD CHOLESTEROL INCREASED
  10. COMBIVENT [Concomitant]

REACTIONS (1)
  - DYSARTHRIA [None]
